FAERS Safety Report 8406899-6 (Version None)
Quarter: 2012Q2

REPORT INFORMATION
  Report Type: 
  Country: None (occurrence: None)
  Receive Date: 20120604
  Receipt Date: 20120523
  Transmission Date: 20120825
  Serious: Yes (Hospitalization, Other)
  Sender: FDA-Public Use
  Company Number: US-SANOFI-AVENTIS-2012SA019202

PATIENT
  Age: 67 Year
  Sex: Female
  Weight: 65.13 kg

DRUGS (31)
  1. ALBUTEROL [Concomitant]
  2. BLINDED THERAPY [Suspect]
     Route: 065
     Dates: start: 20111005, end: 20111028
  3. SINGULAIR [Concomitant]
  4. ZOFRAN [Concomitant]
  5. DOCETAXEL [Suspect]
     Dosage: 60MG/M2
     Route: 041
     Dates: start: 20111005, end: 20111005
  6. DOCETAXEL [Suspect]
     Dosage: 60MG/M2
     Route: 041
     Dates: start: 20111028, end: 20111028
  7. FLONASE [Concomitant]
  8. DOCETAXEL [Suspect]
     Dosage: 75 MG/M2
     Route: 041
     Dates: start: 20110908, end: 20110908
  9. PEPCID [Concomitant]
  10. MULTI-VITAMINS [Concomitant]
  11. SYNTHROID [Concomitant]
  12. DOCETAXEL [Suspect]
     Dosage: 75 MG/M2
     Route: 041
     Dates: start: 20110617, end: 20110617
  13. MORPHINE [Concomitant]
  14. VITAMIN C [Concomitant]
  15. DIPHENHYDRAMINE HCL [Concomitant]
  16. ALLEGRA [Concomitant]
  17. ZOLOFT [Concomitant]
  18. BLINDED THERAPY [Suspect]
     Route: 065
     Dates: start: 20110617, end: 20111005
  19. ZOMETA [Concomitant]
  20. ASPIRIN [Concomitant]
  21. ALBUTEROL SULFATE AND IPRATROPIUM BROMIDE [Concomitant]
  22. XANAX [Concomitant]
  23. MIRALAX [Concomitant]
  24. ALOXI [Concomitant]
  25. ATIVAN [Concomitant]
  26. BUDESONIDE [Concomitant]
  27. COMPAZINE [Concomitant]
  28. CALCIUM CARBONATE [Concomitant]
  29. VITAMIN D [Concomitant]
  30. AMBIEN [Concomitant]
  31. AZITHROMYCIN [Concomitant]
     Dates: start: 20110823, end: 20110830

REACTIONS (3)
  - FATIGUE [None]
  - UNDERDOSE [None]
  - FEBRILE NEUTROPENIA [None]
